FAERS Safety Report 21508520 (Version 1)
Quarter: 2022Q4

REPORT INFORMATION
  Report Type: Spontaneous
  Country: PL (occurrence: PL)
  Receive Date: 20221026
  Receipt Date: 20221026
  Transmission Date: 20230112
  Serious: Yes (Death, Hospitalization)
  Sender: FDA-Public Use
  Company Number: PL-BAYER-2022P018458

PATIENT
  Age: 83 Year
  Sex: Male
  Weight: 87 kg

DRUGS (14)
  1. ADEMPAS [Suspect]
     Active Substance: RIOCIGUAT
     Indication: Pulmonary arterial hypertension
     Dosage: 1.0 MG, TID
     Dates: start: 201811
  2. ADEMPAS [Suspect]
     Active Substance: RIOCIGUAT
     Indication: Pulmonary arterial hypertension
     Dosage: 1.5 MG, TID
     Dates: start: 20181206
  3. ADEMPAS [Suspect]
     Active Substance: RIOCIGUAT
     Indication: Pulmonary arterial hypertension
     Dosage: 2 MG, TID
     Dates: start: 20181220
  4. ADEMPAS [Suspect]
     Active Substance: RIOCIGUAT
     Indication: Pulmonary arterial hypertension
     Dosage: 2.5 MG, TID
     Dates: start: 20190205
  5. XARELTO [Concomitant]
     Active Substance: RIVAROXABAN
     Dosage: 20 MG
     Dates: start: 201704
  6. BOSENTAN [Concomitant]
     Active Substance: BOSENTAN
     Dosage: 62.5 MG, BID
     Dates: start: 20190205
  7. BOSENTAN [Concomitant]
     Active Substance: BOSENTAN
     Dosage: 125 MG, BID
     Dates: start: 20190305, end: 20190326
  8. TORSEMIDE [Concomitant]
     Active Substance: TORSEMIDE
     Dosage: 10 MG
     Dates: start: 201704
  9. PERINDOPRIL [Concomitant]
     Active Substance: PERINDOPRIL
     Dosage: 10 MG
     Dates: start: 201704
  10. DIGOXIN [Concomitant]
     Active Substance: DIGOXIN
     Dosage: 0.1 MG
     Dates: start: 201704
  11. SIMVASTATIN [Concomitant]
     Active Substance: SIMVASTATIN
     Dosage: 40 MG
     Dates: start: 201704
  12. INSULIN NOS [Concomitant]
     Active Substance: INSULIN NOS
     Dosage: 10 U
     Dates: start: 201704
  13. INSULIN NOS [Concomitant]
     Active Substance: INSULIN NOS
     Dosage: UNK
  14. NEBIVOLOL [Concomitant]
     Active Substance: NEBIVOLOL
     Dosage: 5 MG

REACTIONS (2)
  - Syncope [Fatal]
  - Chest pain [None]

NARRATIVE: CASE EVENT DATE: 20190301
